FAERS Safety Report 13478215 (Version 2)
Quarter: 2017Q3

REPORT INFORMATION
  Report Type: Spontaneous
  Country: US (occurrence: US)
  Receive Date: 20170424
  Receipt Date: 20170728
  Transmission Date: 20171127
  Serious: No
  Sender: FDA-Public Use
  Company Number: US-AMGEN-USASP2017028939

PATIENT

DRUGS (3)
  1. REPATHA [Suspect]
     Active Substance: EVOLOCUMAB
     Indication: PRODUCT USED FOR UNKNOWN INDICATION
     Dosage: UNK
     Route: 065
  2. HYDROCHLOROTHIAZIDE. [Concomitant]
     Active Substance: HYDROCHLOROTHIAZIDE
  3. DIOVAN [Concomitant]
     Active Substance: VALSARTAN
     Dosage: 300 MG, UNK

REACTIONS (8)
  - Headache [Not Recovered/Not Resolved]
  - Dysphonia [Unknown]
  - Abdominal pain upper [Unknown]
  - Irritability [Unknown]
  - Cough [Unknown]
  - Agitation [Unknown]
  - Speech disorder [Unknown]
  - Ear pain [Unknown]
